FAERS Safety Report 10383356 (Version 2)
Quarter: 2014Q4

REPORT INFORMATION
  Report Type: Spontaneous
  Country: BR (occurrence: BR)
  Receive Date: 20140814
  Receipt Date: 20141106
  Transmission Date: 20150528
  Serious: Yes (Other)
  Sender: FDA-Public Use
  Company Number: BR-AMGEN-BRASP2014061436

PATIENT
  Age: 38 Year
  Sex: Male
  Weight: 74 kg

DRUGS (1)
  1. ENBREL [Suspect]
     Active Substance: ETANERCEPT
     Indication: ANKYLOSING SPONDYLITIS
     Dosage: 50 MG, ONCE WEEKLY
     Route: 058
     Dates: start: 201209

REACTIONS (8)
  - Pain [Recovered/Resolved]
  - Product quality issue [Unknown]
  - Injection site pruritus [Not Recovered/Not Resolved]
  - Injection site pain [Unknown]
  - Ocular hyperaemia [Recovered/Resolved]
  - Injection site erythema [Not Recovered/Not Resolved]
  - Uveitis [Recovered/Resolved]
  - Insomnia [Recovered/Resolved]

NARRATIVE: CASE EVENT DATE: 201209
